FAERS Safety Report 17429581 (Version 1)
Quarter: 2020Q1

REPORT INFORMATION
  Report Type: Spontaneous
  Country: JP (occurrence: JP)
  Receive Date: 20200218
  Receipt Date: 20200218
  Transmission Date: 20200409
  Serious: Yes (Hospitalization, Other)
  Sender: FDA-Public Use
  Company Number: JP-FERRINGPH-2020FE00796

PATIENT
  Age: 93 Year
  Sex: Female

DRUGS (1)
  1. DESMOPRESSIN KYOWA [Suspect]
     Active Substance: DESMOPRESSIN
     Indication: DIABETES INSIPIDUS
     Dosage: UNK
     Route: 045
     Dates: start: 1987

REACTIONS (1)
  - Glaucoma [Unknown]
